FAERS Safety Report 7963573-8 (Version None)
Quarter: 2011Q4

REPORT INFORMATION
  Report Type: 
  Country: None (occurrence: None)
  Receive Date: 20111208
  Receipt Date: 20111130
  Transmission Date: 20120403
  Serious: Yes (Hospitalization)
  Sender: FDA-Public Use
  Company Number: US-BAYER-201039615NA

PATIENT
  Age: 40 Year
  Sex: Female
  Weight: 77.098 kg

DRUGS (10)
  1. DROSPIRENONE AND ETHINYL ESTRADIOL [Suspect]
     Indication: PREMENSTRUAL SYNDROME
  2. NSAID'S [Concomitant]
     Indication: MENORRHAGIA
     Dosage: UNK
     Dates: start: 20040101, end: 20080101
  3. YASMIN [Suspect]
     Indication: ACNE
  4. XYZAL [Concomitant]
     Indication: MULTIPLE ALLERGIES
     Dosage: 5 MG, DAILY
     Dates: start: 20050101
  5. LIPITOR [Concomitant]
     Dosage: UNK
     Dates: start: 20080826
  6. YASMIN [Suspect]
     Indication: ORAL CONTRACEPTION
     Dosage: UNK
     Dates: start: 20080301, end: 20080701
  7. DROSPIRENONE AND ETHINYL ESTRADIOL [Suspect]
     Indication: ORAL CONTRACEPTION
     Dosage: UNK
     Route: 048
     Dates: start: 20080801, end: 20081101
  8. ACETAMINOPHEN [Concomitant]
     Dosage: UNK UNK, PRN
     Route: 048
  9. DROSPIRENONE AND ETHINYL ESTRADIOL [Suspect]
     Indication: ACNE
  10. YASMIN [Suspect]
     Indication: PREMENSTRUAL SYNDROME

REACTIONS (5)
  - OEDEMA PERIPHERAL [None]
  - DEEP VEIN THROMBOSIS [None]
  - DYSPNOEA [None]
  - PULMONARY EMBOLISM [None]
  - PAIN [None]
